FAERS Safety Report 8906381 (Version 1)
Quarter: 2012Q4

REPORT INFORMATION
  Report Type: Spontaneous
  Country: US (occurrence: None)
  Receive Date: 20121109
  Receipt Date: 20121109
  Transmission Date: 20130627
  Serious: Yes (Other)
  Sender: FDA-Public Use
  Company Number: None

PATIENT
  Age: 58 Year
  Sex: Female
  Weight: 86.18 kg

DRUGS (10)
  1. LIVALO [Suspect]
     Indication: HYPERCHOLESTEROLAEMIA
     Route: 048
     Dates: start: 20120802, end: 20120805
  2. SYNTHROID [Concomitant]
  3. NEURONTIN [Concomitant]
  4. PROTONIX [Concomitant]
  5. ATENOLOL [Concomitant]
  6. CULAN [Concomitant]
  7. SKELAXIN [Concomitant]
  8. RESTORIL [Concomitant]
  9. ELAVIL [Concomitant]
  10. VICOPROFEN [Concomitant]

REACTIONS (1)
  - Myalgia [None]
